FAERS Safety Report 7243602-X (Version None)
Quarter: 2011Q1

REPORT INFORMATION
  Report Type: 
  Country: None (occurrence: None)
  Receive Date: 20110125
  Receipt Date: 20110114
  Transmission Date: 20110831
  Serious: Yes (Hospitalization)
  Sender: FDA-Public Use
  Company Number: PHHY2011FR04552

PATIENT
  Sex: Male
  Weight: 104 kg

DRUGS (10)
  1. ALFUZOSIN [Suspect]
     Indication: BENIGN PROSTATIC HYPERPLASIA
     Dosage: 10 MG, QD
     Route: 048
     Dates: start: 20081115, end: 20101116
  2. PARACETAMOL [Suspect]
     Indication: PAIN
     Dosage: UNK
     Dates: end: 20101115
  3. HEMIGOXINE [Concomitant]
     Dosage: UNK
  4. PREVISCAN [Suspect]
     Dosage: UNK
     Dates: start: 20101130, end: 20101205
  5. BRONCHOKOD [Suspect]
     Indication: COUGH
     Dosage: UNK, 2 FLASKS
     Route: 048
     Dates: start: 20101114, end: 20101115
  6. ZOLPIDEM [Suspect]
     Indication: INSOMNIA
     Dosage: 2 DF, QD
     Route: 048
     Dates: start: 20090215, end: 20101115
  7. UMULINE [Concomitant]
     Dosage: 40 IU, IN THE MORNING AND IN THE EVENING
  8. CIBACEN [Suspect]
     Indication: HYPERTENSION
     Dosage: UNK
     Route: 048
     Dates: start: 20090315, end: 20101116
  9. OMEPRAZOLE [Suspect]
     Dosage: 1 DF, QD
     Route: 048
     Dates: start: 20100815, end: 20101116
  10. PREVISCAN [Suspect]
     Indication: ATRIAL FIBRILLATION
     Dosage: UNK
     Route: 048
     Dates: end: 20101116

REACTIONS (3)
  - CYTOLYTIC HEPATITIS [None]
  - PRURITUS [None]
  - JAUNDICE CHOLESTATIC [None]
